FAERS Safety Report 10789804 (Version 1)
Quarter: 2015Q1

REPORT INFORMATION
  Report Type: Spontaneous
  Country: US (occurrence: None)
  Receive Date: 20150211
  Receipt Date: 20150211
  Transmission Date: 20150721
  Serious: Yes (Life-Threatening, Hospitalization, Disabling, Other)
  Sender: FDA-Public Use
  Company Number: None

PATIENT
  Age: 15 Year
  Sex: Male
  Weight: 95.26 kg

DRUGS (3)
  1. COGENTIN [Concomitant]
     Active Substance: BENZTROPINE MESYLATE
  2. CLOZARIL [Suspect]
     Active Substance: CLOZAPINE
     Indication: PRODUCT USED FOR UNKNOWN INDICATION
  3. HALDOL [Concomitant]
     Active Substance: HALOPERIDOL

REACTIONS (13)
  - Victim of crime [None]
  - Paradoxical drug reaction [None]
  - Thought blocking [None]
  - Hallucination, auditory [None]
  - Self injurious behaviour [None]
  - Drug ineffective [None]
  - Suicide attempt [None]
  - Cerebral disorder [None]
  - Educational problem [None]
  - Delirium [None]
  - Depression [None]
  - Aggression [None]
  - Catatonia [None]
